FAERS Safety Report 5133992-6 (Version None)
Quarter: 2006Q4

REPORT INFORMATION
  Report Type: 
  Country: None (occurrence: None)
  Receive Date: 20061019
  Receipt Date: 20061004
  Transmission Date: 20070319
  Serious: Yes (Hospitalization, Other)
  Sender: FDA-Public Use
  Company Number: 2003006051

PATIENT
  Age: 33 Year
  Sex: Male

DRUGS (4)
  1. SULFASALAZINE [Suspect]
     Indication: ANKYLOSING SPONDYLITIS
     Dosage: (6 IN 1 D), ORAL
     Route: 048
     Dates: start: 20021114, end: 20021215
  2. FELDENE [Suspect]
     Indication: ANKYLOSING SPONDYLITIS
     Dosage: (2 IN 1 D), ORAL
     Route: 048
     Dates: start: 20021114, end: 20021215
  3. CODEINE PHOSPHATE AND ACETAMINOPHEN [Suspect]
     Indication: DRUG USE FOR UNKNOWN INDICATION
     Dosage: (3 IN 1 D), ORAL
     Route: 048
     Dates: start: 20021126, end: 20021215
  4. LANSOPRAZOLE [Suspect]
     Indication: DRUG USE FOR UNKNOWN INDICATION
     Dosage: (1 IN 1 D), ORAL
     Route: 048
     Dates: start: 20021007, end: 20021215

REACTIONS (22)
  - ALANINE AMINOTRANSFERASE INCREASED [None]
  - CHOLESTASIS [None]
  - CYTOLYTIC HEPATITIS [None]
  - EOSINOPHILIA [None]
  - EPSTEIN-BARR VIRUS INFECTION [None]
  - ERYTHEMA [None]
  - FACE OEDEMA [None]
  - GASTROENTERITIS [None]
  - GENERALISED ERYTHEMA [None]
  - HAEMODYNAMIC INSTABILITY [None]
  - HEADACHE [None]
  - HYPERSENSITIVITY [None]
  - INFLAMMATION [None]
  - LEUKOCYTOSIS [None]
  - LOCALISED OEDEMA [None]
  - LYMPHADENOPATHY [None]
  - OEDEMA [None]
  - OEDEMA PERIPHERAL [None]
  - PYREXIA [None]
  - RASH [None]
  - RASH MACULAR [None]
  - SKIN EXFOLIATION [None]
